FAERS Safety Report 10365186 (Version 1)
Quarter: 2014Q3

REPORT INFORMATION
  Report Type: Spontaneous
  Country: AU (occurrence: AU)
  Receive Date: 20140806
  Receipt Date: 20140806
  Transmission Date: 20150326
  Serious: Yes (Hospitalization, Other)
  Sender: FDA-Public Use
  Company Number: PHHY2014AU095730

PATIENT
  Age: 83 Year
  Sex: Female

DRUGS (12)
  1. CLARITHROMYCIN. [Suspect]
     Active Substance: CLARITHROMYCIN
     Indication: LOWER RESPIRATORY TRACT INFECTION
     Dosage: 250 MG, BID
  2. ASPIRIN. [Concomitant]
     Active Substance: ASPIRIN
  3. SERETIDE [Concomitant]
     Active Substance: FLUTICASONE FUROATE\SALMETEROL XINAFOATE
  4. METOPROLOL [Concomitant]
     Active Substance: METOPROLOL
  5. RAMIPRIL. [Concomitant]
     Active Substance: RAMIPRIL
  6. PROPYLTHIOURACIL. [Concomitant]
     Active Substance: PROPYLTHIOURACIL
  7. SIMVASTATIN. [Interacting]
     Active Substance: SIMVASTATIN
     Dosage: 80 MG, UNK
  8. EZETIMIBE. [Concomitant]
     Active Substance: EZETIMIBE
     Dosage: 10 MG, UNK
  9. VENTOLIN [Concomitant]
     Active Substance: ALBUTEROL SULFATE
  10. NITROLINGUAL-SPRAY N [Concomitant]
  11. CLARITHROMYCIN. [Interacting]
     Active Substance: CLARITHROMYCIN
     Indication: ASTHMA
     Dosage: 500 MG, BID
  12. TIOTROPIUM [Concomitant]
     Active Substance: TIOTROPIUM

REACTIONS (13)
  - Wheezing [Recovering/Resolving]
  - Malaise [Recovering/Resolving]
  - Oedema peripheral [Recovering/Resolving]
  - Rhabdomyolysis [Recovering/Resolving]
  - Chromaturia [Recovering/Resolving]
  - Drug interaction [Unknown]
  - Myalgia [Recovering/Resolving]
  - Abasia [Recovering/Resolving]
  - Muscular weakness [Recovering/Resolving]
  - Myopathy [Recovering/Resolving]
  - Blood creatine phosphokinase increased [Recovering/Resolving]
  - Troponin T increased [Recovering/Resolving]
  - Dysstasia [Recovering/Resolving]
